FAERS Safety Report 6764095-2 (Version None)
Quarter: 2010Q2

REPORT INFORMATION
  Report Type: 
  Country: None (occurrence: None)
  Receive Date: 20100610
  Receipt Date: 20100531
  Transmission Date: 20101027
  Serious: Yes (Hospitalization, Other)
  Sender: FDA-Public Use
  Company Number: BR-SANOFI-AVENTIS-200911310GDDC

PATIENT
  Age: 44 Year
  Sex: Female
  Weight: 53 kg

DRUGS (14)
  1. LANTUS OPTISET [Suspect]
     Route: 058
  2. OPTISET [Suspect]
  3. INSULIN GLARGINE [Suspect]
     Route: 058
  4. OPTIPEN [Suspect]
     Dates: start: 20070101
  5. ISOSORBIDE MONONITRATE [Concomitant]
     Indication: CARDIOVASCULAR DISORDER
     Route: 048
     Dates: start: 20020101
  6. CARVEDILOL [Concomitant]
     Indication: CARDIOVASCULAR DISORDER
     Route: 048
     Dates: start: 20020101
  7. FUROSEMIDE [Concomitant]
     Indication: CARDIOVASCULAR DISORDER
     Route: 048
     Dates: start: 20020101
  8. ACETYLSALICYLIC ACID [Concomitant]
     Indication: CARDIOVASCULAR DISORDER
     Route: 048
     Dates: start: 20020101
  9. ALPRAZOLAM [Concomitant]
     Indication: CARDIOVASCULAR DISORDER
     Dates: start: 20020101
  10. ATACAND [Concomitant]
     Indication: CARDIOVASCULAR DISORDER
     Dates: start: 20020101
  11. CLOPIDOGREL [Concomitant]
     Indication: CARDIOVASCULAR DISORDER
     Dates: start: 20020101
  12. ALDACTONE [Concomitant]
     Dates: start: 20090101
  13. SIMVASTATIN [Concomitant]
     Dates: start: 20020101
  14. AUTOPEN 24 [Suspect]
     Route: 058
     Dates: start: 20100527, end: 20100530

REACTIONS (2)
  - HYPOGLYCAEMIA [None]
  - MYOCARDIAL INFARCTION [None]
